FAERS Safety Report 7245370-4 (Version None)
Quarter: 2011Q1

REPORT INFORMATION
  Report Type: 
  Country: None (occurrence: None)
  Receive Date: 20110126
  Receipt Date: 20110118
  Transmission Date: 20110831
  Serious: Yes (Other)
  Sender: FDA-Public Use
  Company Number: US-ROCHE-754991

PATIENT
  Sex: Male

DRUGS (2)
  1. VIGAMOX [Concomitant]
     Dosage: DOSE 3 HS, THERAPY T9H Q1 DX 3 DAYS
  2. AVASTIN [Suspect]
     Route: 031
     Dates: start: 20101217, end: 20101217

REACTIONS (3)
  - VISION BLURRED [None]
  - VITREOUS FLOATERS [None]
  - PHOTOPHOBIA [None]
